FAERS Safety Report 6526678-4 (Version None)
Quarter: 2009Q4

REPORT INFORMATION
  Report Type: 
  Country: None (occurrence: None)
  Receive Date: 20091214
  Receipt Date: 20081202
  Transmission Date: 20100525
  Serious: Yes (Other)
  Sender: FDA-Public Use
  Company Number: 600582

PATIENT
  Age: 61 Year
  Sex: Male
  Weight: 101.6 kg

DRUGS (10)
  1. PEGASYS [Suspect]
     Indication: HEPATITIS C
     Dosage: 180 UG 1 PER WEEK SUBCUTANEOUS
     Route: 058
     Dates: start: 20081003, end: 20081022
  2. COPEGUS [Suspect]
     Indication: HEPATITIS C
     Dates: start: 20081003, end: 20081022
  3. TRUVADA [Concomitant]
  4. CRIXIVAN [Concomitant]
  5. NORVIR [Concomitant]
  6. LANTUS [Concomitant]
  7. JANUVIA (SITAGLIPTIN) [Concomitant]
  8. SYNTHROID [Concomitant]
  9. LISINOPRIL [Concomitant]
  10. AMBIEN CR [Concomitant]

REACTIONS (2)
  - HYPERBILIRUBINAEMIA [None]
  - RASH [None]
